FAERS Safety Report 4674411-3 (Version None)
Quarter: 2005Q2

REPORT INFORMATION
  Report Type: 
  Country: None (occurrence: None)
  Receive Date: 20050524
  Receipt Date: 20050510
  Transmission Date: 20051028
  Serious: Yes (Other)
  Sender: FDA-Public Use
  Company Number: USA050597793

PATIENT
  Age: 77 Year
  Sex: Male

DRUGS (5)
  1. HUMULIN L [Suspect]
     Indication: DIABETES MELLITUS
     Dosage: 48 U DAY
     Dates: start: 20000101
  2. HUMULIN R [Suspect]
     Indication: DIABETES MELLITUS
     Dosage: 8 U DAY
     Dates: start: 20000101, end: 20040101
  3. HUMALOG [Suspect]
     Indication: DIABETES MELLITUS
     Dates: start: 20040101
  4. NOVOLIN L (INSULIN HUMAN ZINC SUSPENSION) [Concomitant]
  5. NOVOLIN R [Concomitant]

REACTIONS (8)
  - BLOOD GLUCOSE FLUCTUATION [None]
  - CATARACT [None]
  - DRUG INEFFECTIVE [None]
  - HYPOAESTHESIA [None]
  - RETINAL HAEMORRHAGE [None]
  - TREMOR [None]
  - VISION BLURRED [None]
  - VISUAL DISTURBANCE [None]
